FAERS Safety Report 18071012 (Version 1)
Quarter: 2020Q3

REPORT INFORMATION
  Report Type: Spontaneous
  Country: CA (occurrence: CA)
  Receive Date: 20200727
  Receipt Date: 20200727
  Transmission Date: 20201103
  Serious: Yes (Other)
  Sender: FDA-Public Use
  Company Number: CA-SA-2020SA191426

PATIENT

DRUGS (1)
  1. ALEMTUZUMAB [Suspect]
     Active Substance: ALEMTUZUMAB
     Indication: MULTIPLE SCLEROSIS
     Dosage: 36 MG
     Route: 041
     Dates: start: 201812, end: 201812

REACTIONS (1)
  - Autoimmune neutropenia [Recovering/Resolving]

NARRATIVE: CASE EVENT DATE: 201905
